FAERS Safety Report 19772702 (Version 1)
Quarter: 2021Q3

REPORT INFORMATION
  Report Type: Spontaneous
  Country: US (occurrence: US)
  Receive Date: 20210830
  Receipt Date: 20210830
  Transmission Date: 20211014
  Serious: Yes (Hospitalization)
  Sender: FDA-Public Use
  Company Number: None

PATIENT
  Age: 63 Year
  Sex: Female

DRUGS (1)
  1. CAPECITABINE TAB 500MG [Suspect]
     Active Substance: CAPECITABINE
     Indication: PANCREATIC CARCINOMA
     Route: 048

REACTIONS (5)
  - Diarrhoea [None]
  - Abdominal pain upper [None]
  - Nausea [None]
  - Off label use [None]
  - Vomiting [None]

NARRATIVE: CASE EVENT DATE: 20210830
